FAERS Safety Report 21335253 (Version 1)
Quarter: 2022Q3

REPORT INFORMATION
  Report Type: Report from Study
  Country: MX (occurrence: MX)
  Receive Date: 20220915
  Receipt Date: 20220915
  Transmission Date: 20221027
  Serious: Yes (Other)
  Sender: FDA-Public Use
  Company Number: MX-NOVARTISPH-NVSC2022MX207225

PATIENT
  Sex: Female
  Weight: 59 kg

DRUGS (2)
  1. EXFORGE HCT [Suspect]
     Active Substance: AMLODIPINE BESYLATE\HYDROCHLOROTHIAZIDE\VALSARTAN
     Indication: Hypertension
     Dosage: 1 DOSAGE FORM, QD, (5/160/12.5 MG), BY MOUTH
     Route: 048
  2. EXFORGE HCT [Suspect]
     Active Substance: AMLODIPINE BESYLATE\HYDROCHLOROTHIAZIDE\VALSARTAN
     Dosage: 0.5 DOSAGE FORM, 1/2 (5/160/12.5 MG),QD AT NIGHT, BY MOUTH, SHE STILL HAD NOT STARTED
     Route: 048

REACTIONS (5)
  - Haematemesis [Unknown]
  - Gastric ulcer [Unknown]
  - Gastritis [Recovering/Resolving]
  - Feeling abnormal [Unknown]
  - Off label use [Unknown]
